FAERS Safety Report 9518480 (Version 1)
Quarter: 2013Q1

REPORT INFORMATION
  Report Type: Spontaneous
  Country: US (occurrence: None)
  Receive Date: 20130305
  Receipt Date: 20130305
  Transmission Date: 20140127
  Serious: Yes (Other)
  Sender: FDA-Public Use
  Company Number: 163-21880-12070237

PATIENT
  Sex: Male

DRUGS (2)
  1. REVLIMID (LENALIDOMIDE) [Suspect]
     Indication: PLASMA CELL MYELOMA
     Dosage: 10 MG, 21 IN 21 D, PO
     Route: 048
     Dates: start: 20111230
  2. TRANSFUSION(BLOOD AND RELATED PRODUCTS) [Concomitant]

REACTIONS (6)
  - Full blood count decreased [None]
  - Disorientation [None]
  - Balance disorder [None]
  - Tremor [None]
  - White blood cell count decreased [None]
  - Drug ineffective [None]
